FAERS Safety Report 4693993-9 (Version None)
Quarter: 2005Q2

REPORT INFORMATION
  Report Type: 
  Country: None (occurrence: None)
  Receive Date: 20050616
  Receipt Date: 20050606
  Transmission Date: 20051028
  Serious: Yes (Other)
  Sender: FDA-Public Use
  Company Number: S05-USA-02815-01

PATIENT
  Age: 21 Year
  Sex: Male
  Weight: 100.6985 kg

DRUGS (6)
  1. CAMPRAL (ACAMPOSATE CALCIUM) [Suspect]
     Indication: ABSTAINS FROM ALCOHOL
     Dosage: 666 MG TID PO
     Route: 048
     Dates: start: 20050430
  2. HUMALOG [Concomitant]
  3. BOTOX (BOTULINUM TOXIN TYPE A) [Concomitant]
  4. VICODIN [Concomitant]
  5. LANTUS [Concomitant]
  6. LIBRIUM [Concomitant]

REACTIONS (10)
  - ASPARTATE AMINOTRANSFERASE INCREASED [None]
  - BLOOD CREATINE INCREASED [None]
  - BLOOD GLUCOSE FLUCTUATION [None]
  - BLOOD GLUCOSE INCREASED [None]
  - DIABETES MELLITUS INADEQUATE CONTROL [None]
  - GLYCOSYLATED HAEMOGLOBIN INCREASED [None]
  - HEADACHE [None]
  - NEUTROPHIL COUNT INCREASED [None]
  - SINUSITIS [None]
  - WHITE BLOOD CELL COUNT INCREASED [None]
